FAERS Safety Report 12174286 (Version 2)
Quarter: 2016Q1

REPORT INFORMATION
  Report Type: Report from Study
  Country: ES (occurrence: ES)
  Receive Date: 20160313
  Receipt Date: 20160329
  Transmission Date: 20160526
  Serious: Yes (Hospitalization, Other)
  Sender: FDA-Public Use
  Company Number: ES-CELGENE-144-21880-13093443

PATIENT
  Age: 73 Year
  Sex: Female
  Weight: 58 kg

DRUGS (7)
  1. VALPROIC ACID. [Concomitant]
     Active Substance: VALPROIC ACID
     Indication: BIPOLAR I DISORDER
     Route: 065
     Dates: start: 20130814
  2. ASPIRINE [Concomitant]
     Active Substance: ASPIRIN
     Indication: THROMBOSIS PROPHYLAXIS
     Route: 065
     Dates: start: 20130716
  3. SULPIRIDA [Concomitant]
     Indication: DEPRESSION
     Route: 065
     Dates: start: 20130716
  4. REVLIMID [Suspect]
     Active Substance: LENALIDOMIDE
     Indication: DIFFUSE LARGE B-CELL LYMPHOMA
     Route: 048
     Dates: start: 20130716, end: 20130903
  5. REVLIMID [Suspect]
     Active Substance: LENALIDOMIDE
     Route: 048
     Dates: start: 20130814, end: 20130910
  6. SULFAMETHOXAZOLE AND TRIMETHOPRIM DS [Concomitant]
     Active Substance: SULFAMETHOXAZOLE\TRIMETHOPRIM
     Indication: INFECTION PROPHYLAXIS
     Route: 065
     Dates: start: 20130211
  7. QUETIATINA [Concomitant]
     Indication: PAIN IN EXTREMITY
     Route: 065
     Dates: start: 20130814

REACTIONS (1)
  - Bipolar I disorder [Recovered/Resolved with Sequelae]

NARRATIVE: CASE EVENT DATE: 20130910
